FAERS Safety Report 7755679-3 (Version None)
Quarter: 2011Q3

REPORT INFORMATION
  Report Type: 
  Country: None (occurrence: None)
  Receive Date: 20110916
  Receipt Date: 20110815
  Transmission Date: 20111222
  Serious: No
  Sender: FDA-Public Use
  Company Number: US-MYLANLABS-2011S1017278

PATIENT

DRUGS (1)
  1. ROCURONIUM BROMIDE [Suspect]
     Indication: ANAESTHESIA
     Route: 042

REACTIONS (1)
  - DELAYED RECOVERY FROM ANAESTHESIA [None]
